FAERS Safety Report 14207689 (Version 1)
Quarter: 2017Q4

REPORT INFORMATION
  Report Type: Spontaneous
  Country: US (occurrence: None)
  Receive Date: 20171120
  Receipt Date: 20171120
  Transmission Date: 20180321
  Serious: Yes (Hospitalization)
  Sender: FDA-Public Use
  Company Number: None

PATIENT
  Age: 72 Year
  Sex: Female

DRUGS (2)
  1. IBRANCE [Suspect]
     Active Substance: PALBOCICLIB
     Indication: BREAST CANCER
     Route: 048
     Dates: start: 20160406
  2. FEMARA [Concomitant]
     Active Substance: LETROZOLE

REACTIONS (3)
  - Surgical procedure repeated [None]
  - Myocardial infarction [None]
  - Vomiting [None]

NARRATIVE: CASE EVENT DATE: 20171002
